FAERS Safety Report 7539214-0 (Version None)
Quarter: 2011Q2

REPORT INFORMATION
  Report Type: 
  Country: None (occurrence: None)
  Receive Date: 20110610
  Receipt Date: 20110527
  Transmission Date: 20111010
  Serious: Yes (Hospitalization, Other)
  Sender: FDA-Public Use
  Company Number: JP-BAYER-2011-031242

PATIENT
  Age: 79 Year
  Sex: Female

DRUGS (12)
  1. TENORMIN [Concomitant]
     Indication: ARRHYTHMIA
     Dosage: 12 MG, QD
     Route: 048
  2. URSO 250 [Concomitant]
     Indication: CHOLESTASIS
     Dosage: 200 MG, TID
     Route: 048
  3. LANSOPRAZOLE [Concomitant]
     Indication: HYPERCHLORHYDRIA
     Dosage: 30 MG, QD
     Route: 048
  4. KREMEZIN [Concomitant]
     Indication: DETOXIFICATION
     Dosage: 2 G, QD
     Route: 048
  5. RED CELLS MAP [Concomitant]
     Indication: UPPER GASTROINTESTINAL HAEMORRHAGE
     Dosage: 4 DF, UNK
     Route: 042
     Dates: start: 20110404
  6. NEXAVAR [Suspect]
     Dosage: DAILY DOSE 400 MG
     Route: 048
     Dates: start: 20110214, end: 20110328
  7. RED CELLS MAP [Concomitant]
     Indication: ANAEMIA MACROCYTIC
     Dosage: DAILY DOSE 4 DF
     Route: 042
     Dates: start: 20110415
  8. ALLOPURINOL [Concomitant]
     Indication: GOUT
     Dosage: 100 MG, QD
     Route: 048
  9. LIVACT [Concomitant]
     Indication: NUTRITIONAL SUPPORT
     Dosage: 4.15 G, TID
     Route: 048
  10. NEXAVAR [Suspect]
     Indication: HEPATIC NEOPLASM MALIGNANT
     Dosage: 400 MG, BID
     Route: 048
     Dates: start: 20110115, end: 20110214
  11. LASIX [Concomitant]
     Indication: POLYURIA
     Dosage: 40 MG, QD
     Route: 048
  12. ALDACTONE [Concomitant]
     Indication: POLYURIA
     Dosage: 50 MG, QD
     Route: 048

REACTIONS (4)
  - DYSKINESIA [None]
  - MALAISE [None]
  - ANAEMIA MACROCYTIC [None]
  - UPPER GASTROINTESTINAL HAEMORRHAGE [None]
